FAERS Safety Report 4408028-2 (Version None)
Quarter: 2004Q3

REPORT INFORMATION
  Report Type: 
  Country: None (occurrence: None)
  Receive Date: 20040721
  Receipt Date: 20040707
  Transmission Date: 20050211
  Serious: Yes (Hospitalization)
  Sender: FDA-Public Use
  Company Number: 2004UW13380

PATIENT
  Age: 53 Year
  Sex: Female

DRUGS (11)
  1. ZOMIG [Suspect]
     Indication: MIGRAINE
     Dates: start: 19980101
  2. SEROQUEL [Suspect]
     Indication: SOMNOLENCE
     Dosage: 100 MG DAILY PO
     Route: 048
     Dates: start: 20010101
  3. VALPROIC ACID [Suspect]
     Dosage: 1500 MG DAILY
     Dates: start: 19950101, end: 20040501
  4. VALPROIC ACID [Suspect]
     Dosage: 1375 MG DAILY
     Dates: start: 20040501
  5. EFFEXOR [Concomitant]
  6. EFFEXOR XR [Concomitant]
  7. TRYPTOPHAN [Concomitant]
  8. RISPERIDONE [Concomitant]
  9. LOPRESSOR [Concomitant]
  10. IMOVANE [Concomitant]
  11. LITHIUM [Concomitant]

REACTIONS (2)
  - DEPRESSION [None]
  - DRUG LEVEL INCREASED [None]
